FAERS Safety Report 11898700 (Version 1)
Quarter: 2016Q1

REPORT INFORMATION
  Report Type: Spontaneous
  Country: BR (occurrence: BR)
  Receive Date: 20160108
  Receipt Date: 20160108
  Transmission Date: 20160526
  Serious: Yes (Life-Threatening, Hospitalization, Other)
  Sender: FDA-Public Use
  Company Number: BR-TEVA-623690ISR

PATIENT
  Age: 73 Year
  Sex: Male
  Weight: 77 kg

DRUGS (10)
  1. NUJOL SOS [Concomitant]
  2. LOSARTAN. [Concomitant]
     Active Substance: LOSARTAN
     Dosage: 50 MILLIGRAM DAILY;
  3. TEVAOXALI [Suspect]
     Active Substance: OXALIPLATIN
     Indication: PANCREATIC CARCINOMA
     Dosage: 11.8429 MILLIGRAM DAILY;
     Route: 042
     Dates: start: 20151020
  4. LEXOTAN [Concomitant]
     Active Substance: BROMAZEPAM
     Dosage: 1.5 MILLIGRAM DAILY; HALF TABLET ONCE A DAY
     Route: 048
  5. ATENOLOL. [Concomitant]
     Active Substance: ATENOLOL
     Dosage: 25 MILLIGRAM DAILY;
  6. IMOSEC SOS [Concomitant]
  7. TEVAIRINOT [Suspect]
     Active Substance: IRINOTECAN HYDROCHLORIDE
     Indication: PANCREATIC CARCINOMA
     Dosage: 25.0786 MILLIGRAM DAILY;
     Route: 042
     Dates: start: 20151020
  8. FAULDFLUOR [Suspect]
     Active Substance: FLUOROURACIL
     Indication: PANCREATIC CARCINOMA
     Dosage: 55.7143 MILLIGRAM DAILY;
     Route: 042
     Dates: start: 20151020
  9. NAUSEDRON [Concomitant]
     Active Substance: ONDANSETRON HYDROCHLORIDE
     Dosage: 16 MILLIGRAM DAILY; THE PATIENT WOULD PERFORM THE TREATMENT DURING FIVE DAYS
  10. DECADRON [Concomitant]
     Active Substance: DEXAMETHASONE
     Dosage: 8 MILLIGRAM DAILY; THE PATIENT WOULD PERFORM THE TREATMENT FOR FIVE DAYS

REACTIONS (14)
  - Acute kidney injury [Recovered/Resolved]
  - Polyneuropathy [Unknown]
  - Haemoptysis [Unknown]
  - Diarrhoea [Recovered/Resolved]
  - Hypertension [Not Recovered/Not Resolved]
  - Mechanical ventilation [Recovered/Resolved]
  - Atrial fibrillation [Recovered/Resolved]
  - Septic shock [Recovered/Resolved]
  - Gastrointestinal haemorrhage [Unknown]
  - Pancytopenia [Recovered/Resolved]
  - Decubitus ulcer [Recovered/Resolved]
  - Colitis ischaemic [Recovered/Resolved]
  - Hepatic enzyme increased [Recovered/Resolved]
  - Delirium [Not Recovered/Not Resolved]

NARRATIVE: CASE EVENT DATE: 2015
